FAERS Safety Report 15738908 (Version 1)
Quarter: 2018Q4

REPORT INFORMATION
  Report Type: Spontaneous
  Country: CA (occurrence: CA)
  Receive Date: 20181219
  Receipt Date: 20181219
  Transmission Date: 20190205
  Serious: Yes (Congenital Anomaly, Other)
  Sender: FDA-Public Use
  Company Number: CA-APOTEX-2018AP027458

PATIENT

DRUGS (1)
  1. PAXIL [Suspect]
     Active Substance: PAROXETINE HYDROCHLORIDE
     Indication: SOCIAL ANXIETY DISORDER
     Dosage: 20 MG, UNK
     Route: 064
     Dates: start: 200310

REACTIONS (5)
  - Single functional kidney [Unknown]
  - Small intestinal obstruction [Unknown]
  - Foetal exposure during pregnancy [Unknown]
  - Gastroschisis [Unknown]
  - Foetal growth restriction [Unknown]
